FAERS Safety Report 5281563-3 (Version None)
Quarter: 2007Q1

REPORT INFORMATION
  Report Type: 
  Country: None (occurrence: None)
  Receive Date: 20070330
  Receipt Date: 20070315
  Transmission Date: 20070707
  Serious: Yes (Hospitalization)
  Sender: FDA-Public Use
  Company Number: JP-BRISTOL-MYERS SQUIBB COMPANY-13731807

PATIENT
  Age: 4 Decade
  Sex: Male

DRUGS (3)
  1. EFAVIRENZ [Suspect]
     Route: 048
     Dates: start: 20061001, end: 20070101
  2. EPIVIR [Suspect]
     Route: 048
     Dates: start: 20061001, end: 20070101
  3. RETROVIR [Suspect]
     Route: 048
     Dates: start: 20061001, end: 20070101

REACTIONS (1)
  - ANAEMIA [None]
